FAERS Safety Report 6085384-3 (Version None)
Quarter: 2009Q1

REPORT INFORMATION
  Report Type: 
  Country: None (occurrence: None)
  Receive Date: 20090220
  Receipt Date: 20090211
  Transmission Date: 20090719
  Serious: Yes (Death)
  Sender: FDA-Public Use
  Company Number: US-AMGEN-US333562

PATIENT
  Age: 15 Year
  Sex: Female

DRUGS (5)
  1. NEUPOGEN [Suspect]
     Indication: CHEMOTHERAPY
  2. DOXORUBICIN HYDROCHLORIDE [Suspect]
  3. CYCLOPHOSPHAMIDE [Suspect]
  4. ETOPOSIDE [Suspect]
  5. IFOSFAMIDE [Suspect]

REACTIONS (3)
  - ACUTE MYELOID LEUKAEMIA [None]
  - DEATH [None]
  - MYELODYSPLASTIC SYNDROME [None]
